FAERS Safety Report 7972809-9 (Version None)
Quarter: 2011Q4

REPORT INFORMATION
  Report Type: 
  Country: None (occurrence: None)
  Receive Date: 20111213
  Receipt Date: 20111209
  Transmission Date: 20120403
  Serious: No
  Sender: FDA-Public Use
  Company Number: US-PFIZER INC-2011301611

PATIENT
  Sex: Female
  Weight: 56.2 kg

DRUGS (1)
  1. RELPAX [Suspect]
     Indication: MIGRAINE
     Dosage: 40 MG, AS NEEDED
     Route: 048
     Dates: start: 20111015

REACTIONS (4)
  - ABDOMINAL DISCOMFORT [None]
  - FEELING ABNORMAL [None]
  - DRUG INEFFECTIVE [None]
  - NAUSEA [None]
